FAERS Safety Report 5283421-7 (Version None)
Quarter: 2007Q2

REPORT INFORMATION
  Report Type: 
  Country: None (occurrence: None)
  Receive Date: 20070402
  Receipt Date: 20070326
  Transmission Date: 20071010
  Serious: Yes (Death, Life-Threatening)
  Sender: FDA-Public Use
  Company Number: ES-JNJFOC-20070306251

PATIENT
  Age: 90 Year
  Sex: Female

DRUGS (1)
  1. HALOPERIDOL ESTEVE [Suspect]
     Indication: DRUG USE FOR UNKNOWN INDICATION
     Route: 048
     Dates: start: 20060318, end: 20060323

REACTIONS (2)
  - DEATH [None]
  - ILEUS PARALYTIC [None]
